FAERS Safety Report 6740298-8 (Version None)
Quarter: 2010Q2

REPORT INFORMATION
  Report Type: 
  Country: None (occurrence: None)
  Receive Date: 20100525
  Receipt Date: 20100511
  Transmission Date: 20101027
  Serious: Yes (Hospitalization)
  Sender: FDA-Public Use
  Company Number: US-JNJFOC-20100506410

PATIENT
  Age: 38 Year
  Sex: Female
  Weight: 65.77 kg

DRUGS (4)
  1. TYLENOL (CAPLET) [Suspect]
     Indication: HEADACHE
     Route: 048
  2. TYLENOL (CAPLET) [Suspect]
     Route: 048
  3. TYLENOL (CAPLET) [Suspect]
     Route: 048
  4. TYLENOL (CAPLET) [Suspect]
     Dosage: TOOK 325MG ACCORDING TO DIRECTION ON 19APR2010, 08MAY2010, AND 09MAY2010.
     Route: 048

REACTIONS (5)
  - DRUG EXPOSURE DURING PREGNANCY [None]
  - GASTROENTERITIS VIRAL [None]
  - PRODUCT ODOUR ABNORMAL [None]
  - PRODUCT QUALITY ISSUE [None]
  - PRODUCT TASTE ABNORMAL [None]
